FAERS Safety Report 26211046 (Version 1)
Quarter: 2025Q4

REPORT INFORMATION
  Report Type: Spontaneous
  Country: CN (occurrence: CN)
  Receive Date: 20251230
  Receipt Date: 20251230
  Transmission Date: 20260117
  Serious: Yes (Hospitalization)
  Sender: ROCHE
  Company Number: CN-ROCHE-10000469692

PATIENT
  Age: 9 Year
  Sex: Male

DRUGS (1)
  1. BALOXAVIR MARBOXIL [Suspect]
     Active Substance: BALOXAVIR MARBOXIL
     Indication: Upper respiratory tract infection
     Route: 048
     Dates: start: 20251222, end: 20251222

REACTIONS (6)
  - Chest discomfort [Recovering/Resolving]
  - Urticaria [Recovering/Resolving]
  - Tachypnoea [Recovering/Resolving]
  - Lip oedema [Unknown]
  - Pallor [Unknown]
  - Heart rate increased [Not Recovered/Not Resolved]

NARRATIVE: CASE EVENT DATE: 20251222
